FAERS Safety Report 21612094 (Version 1)
Quarter: 2022Q4

REPORT INFORMATION
  Report Type: Spontaneous
  Country: FR (occurrence: FR)
  Receive Date: 20221118
  Receipt Date: 20221118
  Transmission Date: 20230113
  Serious: Yes (Hospitalization)
  Sender: FDA-Public Use
  Company Number: FR-AFSSAPS-SE20221133

PATIENT
  Age: 81 Year
  Sex: Female
  Weight: 72.9 kg

DRUGS (2)
  1. MORPHINE [Suspect]
     Active Substance: MORPHINE
     Indication: Sciatica
     Dosage: UNK
     Route: 040
     Dates: start: 20221017, end: 20221017
  2. OXYCONTIN [Suspect]
     Active Substance: OXYCODONE HYDROCHLORIDE
     Indication: Sciatica
     Dosage: UNK
     Route: 048
     Dates: start: 20221017, end: 20221019

REACTIONS (3)
  - Pancreatitis [Recovering/Resolving]
  - Vomiting [Recovered/Resolved]
  - Diarrhoea [Recovered/Resolved]

NARRATIVE: CASE EVENT DATE: 20221017
